FAERS Safety Report 17923053 (Version 1)
Quarter: 2020Q2

REPORT INFORMATION
  Report Type: Spontaneous
  Country: US (occurrence: US)
  Receive Date: 20200622
  Receipt Date: 20200622
  Transmission Date: 20200714
  Serious: No
  Sender: FDA-Public Use
  Company Number: US-BIOGEN-2019BI00701723

PATIENT
  Sex: Female

DRUGS (3)
  1. TECFIDERA [Suspect]
     Active Substance: DIMETHYL FUMARATE
     Indication: MULTIPLE SCLEROSIS
     Route: 050
  2. TECFIDERA [Suspect]
     Active Substance: DIMETHYL FUMARATE
     Route: 048
     Dates: start: 201712
  3. TECFIDERA [Suspect]
     Active Substance: DIMETHYL FUMARATE
     Route: 048
     Dates: start: 20190219

REACTIONS (9)
  - Fall [Recovered/Resolved]
  - Diarrhoea [Unknown]
  - Memory impairment [Unknown]
  - Dizziness [Unknown]
  - Ligament sprain [Unknown]
  - Concussion [Unknown]
  - Flushing [Unknown]
  - Visual impairment [Unknown]
  - Balance disorder [Unknown]
